FAERS Safety Report 5589005-5 (Version None)
Quarter: 2008Q1

REPORT INFORMATION
  Report Type: 
  Country: None (occurrence: None)
  Receive Date: 20080111
  Receipt Date: 20080110
  Transmission Date: 20080703
  Serious: Yes (Hospitalization)
  Sender: FDA-Public Use
  Company Number: US-ABBOTT-07P-163-0420473-00

PATIENT
  Sex: Female
  Weight: 76.272 kg

DRUGS (1)
  1. HUMIRA [Suspect]
     Indication: RHEUMATOID ARTHRITIS
     Route: 058
     Dates: start: 20050101, end: 20070901

REACTIONS (7)
  - ASTHENIA [None]
  - DIZZINESS [None]
  - FAECES DISCOLOURED [None]
  - HERPES ZOSTER [None]
  - LABORATORY TEST ABNORMAL [None]
  - OESOPHAGEAL RUPTURE [None]
  - VOMITING [None]
